FAERS Safety Report 8420047 (Version 3)
Quarter: 2013Q1

REPORT INFORMATION
  Report Type: Report from Study
  Country: NL (occurrence: NL)
  Receive Date: 20120222
  Receipt Date: 20130301
  Transmission Date: 20140127
  Serious: Yes (Hospitalization, Other)
  Sender: FDA-Public Use
  Company Number: NL-JNJFOC-20120112435

PATIENT
  Age: 31 Year
  Sex: Female

DRUGS (9)
  1. REMICADE [Suspect]
     Indication: CROHN^S DISEASE
     Route: 042
     Dates: start: 20080603, end: 20090610
  2. REMICADE [Suspect]
     Indication: COLITIS ULCERATIVE
     Route: 042
     Dates: start: 20080603, end: 20090610
  3. ENTOCORT [Suspect]
     Indication: COLITIS ULCERATIVE
     Route: 065
  4. PREDNISONE [Suspect]
     Indication: COLITIS ULCERATIVE
     Route: 065
  5. PREDNISONE [Suspect]
     Indication: COLITIS ULCERATIVE
     Route: 065
     Dates: start: 20080917
  6. AZATHIOPRIN [Suspect]
     Indication: COLITIS ULCERATIVE
     Route: 065
     Dates: start: 20090608
  7. BECLOMETASON [Concomitant]
     Indication: COLITIS ULCERATIVE
     Route: 054
     Dates: start: 20110704
  8. TAVEGIL [Concomitant]
  9. URSOCHOL [Concomitant]

REACTIONS (4)
  - Foetal death [Recovered/Resolved]
  - Maternal exposure before pregnancy [Recovered/Resolved]
  - Placenta praevia haemorrhage [Recovered/Resolved]
  - Premature labour [Recovered/Resolved]
